FAERS Safety Report 7553030-5 (Version None)
Quarter: 2011Q2

REPORT INFORMATION
  Report Type: 
  Country: None (occurrence: None)
  Receive Date: 20110616
  Receipt Date: 20110602
  Transmission Date: 20111010
  Serious: Yes (Other)
  Sender: FDA-Public Use
  Company Number: US-BAYER-2011-047834

PATIENT
  Age: 82 Year
  Sex: Female
  Weight: 63 kg

DRUGS (12)
  1. ASPIRIN [Suspect]
     Indication: ISCHAEMIC HEART DISEASE PROPHYLAXIS
     Dosage: 81 MG, QD
     Route: 048
  2. ALEVE (CAPLET) [Suspect]
     Indication: ARTHRITIS
     Route: 048
  3. BLOOD TRANSFUSION, AUXILIARY PRODUCTS [Concomitant]
     Indication: HAEMOGLOBIN DECREASED
  4. ACETAMINOPHEN [Concomitant]
  5. PAXIL [Concomitant]
     Indication: ANXIETY
     Dosage: 1 DF, QD
     Route: 048
     Dates: start: 20010101
  6. ASPIRIN [Concomitant]
     Indication: ISCHAEMIC HEART DISEASE PROPHYLAXIS
     Route: 048
  7. CRESTOR [Concomitant]
     Dosage: 1 DF, QD
     Route: 048
     Dates: start: 19960101
  8. FERROUS SULFATE TAB [Concomitant]
     Dosage: 1 DF, QD
     Route: 048
     Dates: start: 20110101
  9. SUCRALFATE [Concomitant]
     Dosage: 1 G, UNK, BEFORE MEALS
     Route: 048
     Dates: start: 20110401
  10. MULTI-VITAMIN [Concomitant]
     Dosage: 1 DF, QD
     Route: 048
  11. LEVOXYL [Concomitant]
  12. PRILOSEC [Concomitant]

REACTIONS (5)
  - HAEMORRHAGE [None]
  - CONTUSION [None]
  - GASTRITIS [None]
  - RASH MACULAR [None]
  - ULCER HAEMORRHAGE [None]
